FAERS Safety Report 12613421 (Version 1)
Quarter: 2016Q3

REPORT INFORMATION
  Report Type: Spontaneous
  Country: US (occurrence: None)
  Receive Date: 20160801
  Receipt Date: 20160801
  Transmission Date: 20161109
  Serious: Yes (Other)
  Sender: FDA-Public Use
  Company Number: None

PATIENT
  Age: 62 Year
  Sex: Female
  Weight: 58.06 kg

DRUGS (3)
  1. O2 [Concomitant]
  2. SYNTHROID [Concomitant]
     Active Substance: LEVOTHYROXINE SODIUM
  3. ROBAXIN [Suspect]
     Active Substance: METHOCARBAMOL
     Indication: DYSTONIA
     Route: 048
     Dates: start: 20160722, end: 20160728

REACTIONS (7)
  - Balance disorder [None]
  - Loss of consciousness [None]
  - Head injury [None]
  - Rash [None]
  - Dizziness [None]
  - Contusion [None]
  - Urticaria [None]

NARRATIVE: CASE EVENT DATE: 20160726
